FAERS Safety Report 4583193-5 (Version None)
Quarter: 2005Q1

REPORT INFORMATION
  Report Type: 
  Country: None (occurrence: None)
  Receive Date: 20050125
  Receipt Date: 20041026
  Transmission Date: 20050727
  Serious: No
  Sender: FDA-Public Use
  Company Number: USA030946848

PATIENT
  Age: 73 Year
  Sex: Female
  Weight: 49 kg

DRUGS (12)
  1. FORTEO [Suspect]
     Indication: OSTEOPOROSIS
     Dosage: 20 UG DAYU
     Dates: start: 20030819
  2. EVISTA [Suspect]
  3. SYNTHROID [Concomitant]
  4. NEXIUM [Concomitant]
  5. PROPECIA [Concomitant]
  6. CLARITIN [Concomitant]
  7. VITAMIN E [Concomitant]
  8. VITAMIN C [Concomitant]
  9. ZINC [Concomitant]
  10. VITAMIN D [Concomitant]
  11. FOSAMAX (ALENDRONA SODIUM) [Concomitant]
  12. ACTONEL [Concomitant]

REACTIONS (8)
  - CATARACT OPERATION [None]
  - HEADACHE [None]
  - INJECTION SITE ERYTHEMA [None]
  - INJECTION SITE HAEMORRHAGE [None]
  - MUSCLE SPASMS [None]
  - PAIN IN EXTREMITY [None]
  - URINARY BLADDER POLYP [None]
  - URINE ANALYSIS ABNORMAL [None]
